FAERS Safety Report 22135112 (Version 2)
Quarter: 2023Q2

REPORT INFORMATION
  Report Type: Report from Study
  Country: EG (occurrence: EG)
  Receive Date: 20230324
  Receipt Date: 20230403
  Transmission Date: 20230722
  Serious: Yes (Other)
  Sender: FDA-Public Use
  Company Number: EG-002147023-NVSC2023EG064419

PATIENT
  Sex: Female

DRUGS (3)
  1. LUCENTIS [Suspect]
     Active Substance: RANIBIZUMAB
     Indication: Diabetic retinal oedema
     Dosage: UNK (STARTED 3 MONTHS AGO IN THE RIGHT EYE)
     Route: 031
     Dates: end: 20230222
  2. LUCENTIS [Suspect]
     Active Substance: RANIBIZUMAB
     Indication: Retinal haemorrhage
  3. AMARYL [Concomitant]
     Active Substance: GLIMEPIRIDE
     Indication: Diabetes mellitus
     Dosage: UNK (STARTED ONE YEAR AGO, ONE TAB IN MORNING AND ANOTHER AT NIGHT)
     Route: 048

REACTIONS (2)
  - Macular oedema [Recovering/Resolving]
  - Visual impairment [Recovering/Resolving]
